FAERS Safety Report 14209879 (Version 1)
Quarter: 2017Q4

REPORT INFORMATION
  Report Type: Spontaneous
  Country: US (occurrence: US)
  Receive Date: 20171121
  Receipt Date: 20171121
  Transmission Date: 20180321
  Serious: Yes (Disabling)
  Sender: FDA-Public Use
  Company Number: None

PATIENT
  Age: 78 Year
  Sex: Female
  Weight: 81 kg

DRUGS (4)
  1. MULTIVITAMIN [Concomitant]
     Active Substance: VITAMINS
  2. ATROPINE SULFATE OPTHALMIC SOLUTION, USP [Suspect]
     Active Substance: ATROPINE SULFATE
     Indication: INTRAOCULAR PRESSURE DECREASED
     Dosage: QUANTITY:1 DROP(S);??
     Route: 047
     Dates: start: 20170929, end: 20171121
  3. ATROPINE SULFATE OPTHALMIC SOLUTION, USP [Suspect]
     Active Substance: ATROPINE SULFATE
     Indication: CATARACT OPERATION
     Dosage: QUANTITY:1 DROP(S);??
     Route: 047
     Dates: start: 20170929, end: 20171121
  4. PREDNISOLONE. [Concomitant]
     Active Substance: PREDNISOLONE

REACTIONS (13)
  - Stomatitis [None]
  - Ear pain [None]
  - Pain in jaw [None]
  - Blister [None]
  - Hypersensitivity [None]
  - Throat tightness [None]
  - Gingival pain [None]
  - Eye pruritus [None]
  - Pyrexia [None]
  - Nausea [None]
  - Constipation [None]
  - Diarrhoea [None]
  - Acne [None]

NARRATIVE: CASE EVENT DATE: 20171121
